FAERS Safety Report 5925634-4 (Version None)
Quarter: 2008Q3

REPORT INFORMATION
  Report Type: 
  Country: None (occurrence: None)
  Receive Date: 20080909
  Receipt Date: 20080123
  Transmission Date: 20090109
  Serious: Yes (Hospitalization, Other)
  Sender: FDA-Public Use
  Company Number: 163-20785-08010091

PATIENT
  Age: 49 Year
  Sex: Female
  Weight: 40.8237 kg

DRUGS (4)
  1. THALOMID [Suspect]
     Indication: INTRAOCULAR MELANOMA
     Dosage: 400 MG, 2 IN 1 D, ORAL; 300 MG, 3 IN 1 D, ORAL
     Route: 048
     Dates: start: 20070307, end: 20070401
  2. THALOMID [Suspect]
     Indication: MALIGNANT MELANOMA
     Dosage: 400 MG, 2 IN 1 D, ORAL; 300 MG, 3 IN 1 D, ORAL
     Route: 048
     Dates: start: 20070307, end: 20070401
  3. THALOMID [Suspect]
     Indication: INTRAOCULAR MELANOMA
     Dosage: 400 MG, 2 IN 1 D, ORAL; 300 MG, 3 IN 1 D, ORAL
     Route: 048
     Dates: start: 20070405
  4. THALOMID [Suspect]
     Indication: MALIGNANT MELANOMA
     Dosage: 400 MG, 2 IN 1 D, ORAL; 300 MG, 3 IN 1 D, ORAL
     Route: 048
     Dates: start: 20070405

REACTIONS (4)
  - HERPES ZOSTER [None]
  - HYPOAESTHESIA [None]
  - PLATELET COUNT DECREASED [None]
  - WEIGHT DECREASED [None]
